FAERS Safety Report 11112331 (Version 1)
Quarter: 2015Q2

REPORT INFORMATION
  Report Type: Spontaneous
  Country: US (occurrence: None)
  Receive Date: 20150513
  Receipt Date: 20150513
  Transmission Date: 20150821
  Serious: Yes (Hospitalization, Other)
  Sender: FDA-Public Use
  Company Number: None

PATIENT
  Age: 70 Year
  Sex: Male
  Weight: 90.72 kg

DRUGS (9)
  1. C-PAP MACHINE FOR COPD [Concomitant]
  2. OMEGA FISH OIL [Concomitant]
     Active Substance: FISH OIL\OMEGA-3 FATTY ACIDS
  3. MUTI VITAMIN [Concomitant]
  4. RABEPRAZOLE [Concomitant]
     Active Substance: RABEPRAZOLE
  5. VITAMIN D [Concomitant]
     Active Substance: CHOLECALCIFEROL
  6. CINNAMON. [Concomitant]
     Active Substance: CINNAMON
  7. DETROL LA [Suspect]
     Active Substance: TOLTERODINE TARTRATE
     Indication: POLLAKIURIA
     Route: 048
     Dates: start: 20150219, end: 20150512
  8. LISINOPRIL. [Concomitant]
     Active Substance: LISINOPRIL
  9. CELECOXIB. [Concomitant]
     Active Substance: CELECOXIB

REACTIONS (4)
  - Dizziness [None]
  - Dry mouth [None]
  - Vision blurred [None]
  - Abdominal pain [None]

NARRATIVE: CASE EVENT DATE: 20150510
